FAERS Safety Report 19993014 (Version 2)
Quarter: 2021Q4

REPORT INFORMATION
  Report Type: Spontaneous
  Country: NZ (occurrence: NZ)
  Receive Date: 20211025
  Receipt Date: 20211111
  Transmission Date: 20220304
  Serious: Yes (Hospitalization, Disabling)
  Sender: FDA-Public Use
  Company Number: NZ-ELI_LILLY_AND_COMPANY-NZ202110004697

PATIENT
  Age: 33 Year
  Sex: Male
  Weight: 66 kg

DRUGS (3)
  1. ZYPREXA RELPREVV [Suspect]
     Active Substance: OLANZAPINE PAMOATE
     Indication: Schizophrenia
     Dosage: 405 MG, OTHER
     Route: 030
     Dates: start: 20201026, end: 20211013
  2. ZYPREXA RELPREVV [Suspect]
     Active Substance: OLANZAPINE PAMOATE
     Indication: Schizophrenia
     Dosage: 405 MG, OTHER
     Route: 030
     Dates: start: 20201026, end: 20211013
  3. ZYPREXA RELPREVV [Suspect]
     Active Substance: OLANZAPINE PAMOATE
     Indication: Schizophrenia
     Dosage: 405 MG, OTHER
     Route: 030
     Dates: start: 20201026, end: 20211013

REACTIONS (3)
  - Unresponsive to stimuli [Recovered/Resolved]
  - Loss of consciousness [Unknown]
  - Post-injection delirium sedation syndrome [Recovered/Resolved]

NARRATIVE: CASE EVENT DATE: 20211013
